FAERS Safety Report 17489453 (Version 1)
Quarter: 2020Q1

REPORT INFORMATION
  Report Type: Spontaneous
  Country: TR (occurrence: TR)
  Receive Date: 20200303
  Receipt Date: 20200303
  Transmission Date: 20200409
  Serious: Yes (Hospitalization)
  Sender: FDA-Public Use
  Company Number: TR-HQ SPECIALTY-TR-2020INT000019

PATIENT
  Age: 19 Month
  Sex: Male

DRUGS (1)
  1. CALCIUM GLUCONATE IN SODIUM CHLORIDE [Suspect]
     Active Substance: CALCIUM GLUCONATE
     Indication: HEREDITARY HYPOPHOSPHATAEMIC RICKETS
     Dosage: 100 MG/KG/12HOUR; NOCTURNAL CONTINUOUS ENTERAL WITH NASO-GASTRIC CATHETER
     Route: 050

REACTIONS (1)
  - Metabolic acidosis [Recovered/Resolved]
